FAERS Safety Report 9473809 (Version 2)
Quarter: 2013Q3

REPORT INFORMATION
  Report Type: Spontaneous
  Country: US (occurrence: US)
  Receive Date: 20130823
  Receipt Date: 20130823
  Transmission Date: 20140515
  Serious: Yes (Other)
  Sender: FDA-Public Use
  Company Number: US-BRISTOL-MYERS SQUIBB COMPANY-17006362

PATIENT
  Age: 30 Year
  Sex: Male
  Weight: 72.56 kg

DRUGS (5)
  1. SPRYCEL (CML) TABS 50 MG [Suspect]
     Indication: CHRONIC MYELOID LEUKAEMIA
     Dosage: STRENGTH:50MG: 2 TAB/ DAY
     Route: 048
     Dates: start: 20090101
  2. OXYCONTIN [Concomitant]
     Indication: PAIN
     Dates: start: 200910
  3. COUMADIN [Concomitant]
     Indication: DEEP VEIN THROMBOSIS
     Dosage: INTERRUPTED ON: JAN2010,SEP2011-JAN2012.
     Dates: start: 200907
  4. TRAMADOL [Concomitant]
  5. TIZANIDINE [Concomitant]

REACTIONS (7)
  - Thrombosis [Unknown]
  - Muscle tightness [Unknown]
  - Dry skin [Unknown]
  - Dry mouth [Unknown]
  - Synovial cyst [Unknown]
  - Aphthous stomatitis [Unknown]
  - Dehydration [Unknown]
